FAERS Safety Report 24274825 (Version 1)
Quarter: 2024Q3

REPORT INFORMATION
  Report Type: Spontaneous
  Country: GB (occurrence: GB)
  Receive Date: 20240902
  Receipt Date: 20240902
  Transmission Date: 20241016
  Serious: Yes (Other)
  Sender: TEVA
  Company Number: GB-MHRA-TPP5059986C21091368YC1724325266485

PATIENT
  Age: 84 Year
  Sex: Female
  Weight: 59 kg

DRUGS (9)
  1. PREDNISOLONE [Suspect]
     Active Substance: PREDNISOLONE
     Indication: Ill-defined disorder
     Route: 065
  2. DULOXETINE [Concomitant]
     Active Substance: DULOXETINE
     Indication: Ill-defined disorder
     Dosage: 1 DAILY
     Dates: start: 20240619
  3. VENLAFAXINE [Concomitant]
     Active Substance: VENLAFAXINE HYDROCHLORIDE
     Indication: Ill-defined disorder
     Dosage: ONE IN THE MORNING, TWO AT NIGHT, 3 DOSAGE FORMS DAILY
     Dates: start: 20231017
  4. METFORMIN [Concomitant]
     Active Substance: METFORMIN HYDROCHLORIDE
     Indication: Ill-defined disorder
     Dosage: TWO TABLETS WITH BREAKFAST AND TWO WITH EVENING..., 4 DOSAGE FORMS DAILY
     Dates: start: 20231017
  5. LEVOTHYROXINE [Concomitant]
     Active Substance: LEVOTHYROXINE\LEVOTHYROXINE SODIUM
     Indication: Ill-defined disorder
     Dosage: TAKE ONE EACH MORNING (TAKE ALONG WITH 50MCG), 1 DOSAGE FORMS DAILY
     Dates: start: 20231017
  6. FERRIC MALTOL [Concomitant]
     Active Substance: FERRIC MALTOL
     Indication: Ill-defined disorder
     Dosage: TAKE ONE TWICE DAILY, 2 DOSAGE FORMS DAILY
     Dates: start: 20240715
  7. CETRABEN [Concomitant]
     Indication: Ill-defined disorder
     Dosage: USE AS DIRECTED, DURATION: 1.753 YEARS
     Dates: start: 20220919, end: 20240619
  8. RISPERIDONE [Concomitant]
     Active Substance: RISPERIDONE
     Indication: Ill-defined disorder
     Dosage: ONE AT NIGHT, 1 DOSAGE FORMS DAILY
     Dates: start: 20231017
  9. ATORVASTATIN [Concomitant]
     Active Substance: ATORVASTATIN
     Indication: Ill-defined disorder
     Dosage: TAKE ONE DAILY
     Dates: start: 20231017

REACTIONS (1)
  - Acute psychosis [Recovered/Resolved]
